FAERS Safety Report 10627959 (Version 1)
Quarter: 2014Q4

REPORT INFORMATION
  Report Type: Spontaneous
  Country: US (occurrence: US)
  Receive Date: 20141205
  Receipt Date: 20141205
  Transmission Date: 20150529
  Serious: No
  Sender: FDA-Public Use
  Company Number: US-BRISTOL-MYERS SQUIBB COMPANY-21546239

PATIENT
  Age: 40 Year
  Sex: Male
  Weight: 161.45 kg

DRUGS (3)
  1. METFORMIN HCL XR [Suspect]
     Active Substance: METFORMIN HYDROCHLORIDE
  2. BYETTA [Suspect]
     Active Substance: EXENATIDE
     Route: 058
     Dates: start: 20141024
  3. HUMULIN NOS [Suspect]
     Active Substance: INSULIN HUMAN
     Dosage: 1DF: 500

REACTIONS (3)
  - Blood glucose decreased [Unknown]
  - Drug prescribing error [Unknown]
  - Dizziness [Unknown]
